FAERS Safety Report 14433335 (Version 1)
Quarter: 2018Q1

REPORT INFORMATION
  Report Type: Spontaneous
  Country: US (occurrence: US)
  Receive Date: 20180124
  Receipt Date: 20180124
  Transmission Date: 20180509
  Serious: No
  Sender: FDA-Public Use
  Company Number: US-PCCINC-2017-PEL-000796

PATIENT

DRUGS (4)
  1. GABLOFEN [Suspect]
     Active Substance: BACLOFEN
     Dosage: 574.5 ?G, UNK
     Route: 037
  2. GABLOFEN [Suspect]
     Active Substance: BACLOFEN
     Dosage: 834.5 ?G, QD
     Route: 037
  3. GABLOFEN [Suspect]
     Active Substance: BACLOFEN
     Indication: MUSCLE SPASTICITY
     Dosage: 1153 ?G, QD
     Route: 037
  4. GABLOFEN [Suspect]
     Active Substance: BACLOFEN
     Indication: MULTIPLE SCLEROSIS
     Dosage: 576 ?G, QD
     Route: 037

REACTIONS (7)
  - Device malfunction [Recovered/Resolved]
  - Hypertonia [Recovered/Resolved]
  - Condition aggravated [Recovered/Resolved]
  - Pruritus [Recovered/Resolved]
  - Therapy non-responder [Recovered/Resolved]
  - Withdrawal syndrome [Recovered/Resolved]
  - Scar [Recovered/Resolved]

NARRATIVE: CASE EVENT DATE: 201704
